FAERS Safety Report 6068748-3 (Version None)
Quarter: 2009Q1

REPORT INFORMATION
  Report Type: 
  Country: None (occurrence: None)
  Receive Date: 20090203
  Receipt Date: 20090119
  Transmission Date: 20090719
  Serious: Yes (Other)
  Sender: FDA-Public Use
  Company Number: 2009000196

PATIENT
  Sex: Male

DRUGS (1)
  1. TARCEVA [Suspect]
     Dosage: (600 MG), ORAL
     Route: 048

REACTIONS (3)
  - DIARRHOEA [None]
  - DRUG ABUSE [None]
  - RASH [None]
